FAERS Safety Report 24006950 (Version 3)
Quarter: 2024Q4

REPORT INFORMATION
  Report Type: Spontaneous
  Country: GB (occurrence: GB)
  Receive Date: 20240624
  Receipt Date: 20241219
  Transmission Date: 20250114
  Serious: Yes (Hospitalization, Other)
  Sender: TEVA
  Company Number: GB-MLMSERVICE-20240321-4900135-1

PATIENT
  Age: 36 Year
  Sex: Female

DRUGS (25)
  1. VALGANCICLOVIR [Suspect]
     Active Substance: VALGANCICLOVIR
     Indication: Cytomegalovirus viraemia
     Dosage: ON DAY 14
     Route: 065
  2. DEXAMETHASONE [Concomitant]
     Active Substance: DEXAMETHASONE
     Indication: Product used for unknown indication
     Dosage: 1.5 MG/KG DEXAMETHASONE ON DAY 14
  3. ANAKINRA [Concomitant]
     Active Substance: ANAKINRA
     Indication: Haemophagocytic lymphohistiocytosis
     Dosage: INCREASED DOSE
     Route: 065
  4. BIKTARVY [Concomitant]
     Active Substance: BICTEGRAVIR SODIUM\EMTRICITABINE\TENOFOVIR ALAFENAMIDE FUMARATE
     Indication: Hepatitis B reactivation
     Dosage: ON DAY 18
     Route: 065
  5. AZITHROMYCIN [Concomitant]
     Active Substance: AZITHROMYCIN
     Indication: Mycobacterium avium complex infection
     Route: 065
  6. IMMUNOGLOBULINS [Concomitant]
     Indication: Haemophagocytic lymphohistiocytosis
     Route: 042
  7. FLUCONAZOLE [Concomitant]
     Active Substance: FLUCONAZOLE
     Indication: Hepatic function abnormal
     Route: 065
  8. ANIDULAFUNGIN [Concomitant]
     Active Substance: ANIDULAFUNGIN
     Indication: Bronchopulmonary aspergillosis
     Route: 065
  9. ETHAMBUTOL [Concomitant]
     Active Substance: ETHAMBUTOL HYDROCHLORIDE
     Indication: Mycobacterium avium complex infection
     Route: 065
  10. DAPSONE [Suspect]
     Active Substance: DAPSONE
     Indication: Antifungal prophylaxis
     Route: 065
  11. AMPHOTERICIN B [Concomitant]
     Active Substance: AMPHOTERICIN B
     Indication: Antifungal treatment
     Route: 065
  12. EMTRICITABINE\TENOFOVIR DISOPROXIL FUMARATE [Concomitant]
     Active Substance: EMTRICITABINE\TENOFOVIR DISOPROXIL FUMARATE
     Indication: Antiretroviral therapy
     Route: 065
  13. DAPTOMYCIN [Concomitant]
     Active Substance: DAPTOMYCIN
     Indication: Staphylococcal infection
     Route: 065
  14. FOSCARNET SODIUM [Concomitant]
     Active Substance: FOSCARNET SODIUM
     Indication: Cytomegalovirus viraemia
     Dosage: FOSCARNET
     Route: 065
  15. CIDOFOVIR [Concomitant]
     Active Substance: CIDOFOVIR
     Indication: Cytomegalovirus viraemia
     Route: 065
  16. VANCOMYCIN [Concomitant]
     Active Substance: VANCOMYCIN
     Indication: Staphylococcal infection
     Route: 065
  17. PREDNISOLONE [Concomitant]
     Active Substance: PREDNISOLONE
     Indication: Product used for unknown indication
     Dosage: DAILY DOSE: 60 MILLIGRAM
     Route: 065
  18. RIFAMPIN [Concomitant]
     Active Substance: RIFAMPIN
     Indication: Mycobacterium avium complex infection
     Route: 065
  19. COTRIMOXAZOLE [Suspect]
     Active Substance: SULFAMETHOXAZOLE\TRIMETHOPRIM
     Indication: Antifungal prophylaxis
     Route: 065
  20. MEROPENEM [Concomitant]
     Active Substance: MEROPENEM
     Indication: Evidence based treatment
     Route: 065
  21. DOLUTEGRAVIR [Concomitant]
     Active Substance: DOLUTEGRAVIR
     Indication: Antiretroviral therapy
     Route: 065
  22. ETOPOSIDE [Suspect]
     Active Substance: ETOPOSIDE
     Indication: Haemophagocytic lymphohistiocytosis
     Route: 065
  23. PIPERACILLIN AND TAZOBACTAM [Concomitant]
     Active Substance: PIPERACILLIN SODIUM\TAZOBACTAM SODIUM
     Indication: Evidence based treatment
     Route: 065
  24. BENEMID [Concomitant]
     Active Substance: PROBENECID
     Indication: Cytomegalovirus viraemia
     Dosage: PROBENECID
     Route: 065
  25. GANCICLOVIR [Suspect]
     Active Substance: GANCICLOVIR
     Indication: Pneumonia cytomegaloviral
     Route: 042

REACTIONS (15)
  - Pancytopenia [Recovered/Resolved]
  - Febrile neutropenia [Unknown]
  - Mycobacterium avium complex infection [Unknown]
  - Abiotrophia defectiva endocarditis [Unknown]
  - Staphylococcal infection [Unknown]
  - Influenza [Unknown]
  - Lymphoma [Unknown]
  - Off label use [Unknown]
  - Renal impairment [Unknown]
  - Blood beta-D-glucan increased [Unknown]
  - Parvovirus infection [Recovered/Resolved]
  - Eosinophilic pustular folliculitis [Unknown]
  - Acute kidney injury [Unknown]
  - Aspergillus infection [Unknown]
  - Oral candidiasis [Unknown]
